FAERS Safety Report 20739475 (Version 4)
Quarter: 2022Q3

REPORT INFORMATION
  Report Type: Spontaneous
  Country: US (occurrence: US)
  Receive Date: 20220422
  Receipt Date: 20220801
  Transmission Date: 20221027
  Serious: No
  Sender: FDA-Public Use
  Company Number: US-NOVARTISTESTPH-NVSC2022US092977

PATIENT
  Age: 50 Year
  Sex: Female

DRUGS (2)
  1. MEKINIST [Suspect]
     Active Substance: TRAMETINIB DIMETHYL SULFOXIDE
     Indication: Ovarian cancer
     Dosage: 2 MG, QD (STRENGTH: 2 MG)
     Route: 048
     Dates: start: 20220307
  2. MEKINIST [Suspect]
     Active Substance: TRAMETINIB DIMETHYL SULFOXIDE
     Dosage: 1.5 MG, QD (STRENGTH - 1.5 MG)
     Route: 048
     Dates: start: 202204

REACTIONS (6)
  - Diarrhoea [Unknown]
  - Fatigue [Unknown]
  - Product use in unapproved indication [Unknown]
  - Food poisoning [Unknown]
  - Infection [Unknown]
  - Mouth ulceration [Unknown]

NARRATIVE: CASE EVENT DATE: 20220307
